FAERS Safety Report 4609067-9 (Version None)
Quarter: 2005Q2

REPORT INFORMATION
  Report Type: 
  Country: None (occurrence: None)
  Receive Date: 20050228
  Receipt Date: 20040830
  Transmission Date: 20051028
  Serious: Yes (Other)
  Sender: FDA-Public Use
  Company Number: US-JNJFOC-20040702362

PATIENT
  Age: 50 Year
  Sex: Female

DRUGS (6)
  1. TOLECTIN [Suspect]
     Indication: ARTHRITIS
     Dosage: 600 MG, 2 IN 1 DAY; ORAL
     Route: 048
  2. COUMADIN [Suspect]
     Indication: THROMBOSIS
     Dosage: 2 MG; ORAL
     Route: 048
  3. TIAZAC [Concomitant]
  4. KAY CIEL DURA-TABS [Concomitant]
  5. LASIX [Concomitant]
  6. HYDROCHLOROTHIAZIDE [Concomitant]

REACTIONS (1)
  - GASTRIC ULCER HAEMORRHAGE [None]
